FAERS Safety Report 7830577-5 (Version None)
Quarter: 2011Q4

REPORT INFORMATION
  Report Type: 
  Country: None (occurrence: None)
  Receive Date: 20111021
  Receipt Date: 20111017
  Transmission Date: 20120403
  Serious: Yes (Other)
  Sender: FDA-Public Use
  Company Number: US-PFIZER INC-2011249218

PATIENT
  Sex: Female

DRUGS (3)
  1. XALATAN [Suspect]
     Indication: GLAUCOMA
     Dosage: UNK
     Route: 047
  2. KETOROLAC TROMETHAMINE [Suspect]
     Dosage: UNK
     Route: 047
  3. CYCLOSPORINE [Suspect]
     Indication: DRY EYE
     Dosage: UNK
     Route: 047

REACTIONS (3)
  - OCULAR HYPERAEMIA [None]
  - EYE PAIN [None]
  - EYE ALLERGY [None]
